FAERS Safety Report 20476551 (Version 1)
Quarter: 2022Q1

REPORT INFORMATION
  Report Type: Spontaneous
  Country: US (occurrence: US)
  Receive Date: 20220215
  Receipt Date: 20220215
  Transmission Date: 20220423
  Serious: No
  Sender: FDA-Public Use
  Company Number: US-SUNOVION-2022SUN000322

PATIENT
  Sex: Female

DRUGS (3)
  1. LATUDA [Suspect]
     Active Substance: LURASIDONE HYDROCHLORIDE
     Indication: Product used for unknown indication
     Dosage: UNK
     Route: 048
  2. COGENTIN [Suspect]
     Active Substance: BENZTROPINE MESYLATE
     Dosage: 1 MG
  3. COGENTIN [Suspect]
     Active Substance: BENZTROPINE MESYLATE
     Dosage: 0.5 MG

REACTIONS (3)
  - Illness [Unknown]
  - Vomiting [Unknown]
  - Therapy interrupted [Unknown]
